FAERS Safety Report 6275875-4 (Version None)
Quarter: 2009Q3

REPORT INFORMATION
  Report Type: 
  Country: None (occurrence: None)
  Receive Date: 20090720
  Receipt Date: 20090707
  Transmission Date: 20100115
  Serious: Yes (Other)
  Sender: FDA-Public Use
  Company Number: MESA-2009-020

PATIENT
  Sex: Female

DRUGS (1)
  1. CANASA [Suspect]
     Indication: PROCTITIS ULCERATIVE
     Dosage: 1000MG, QD, RECTAL
     Route: 054

REACTIONS (4)
  - CONDITION AGGRAVATED [None]
  - DIARRHOEA [None]
  - FREQUENT BOWEL MOVEMENTS [None]
  - RECTAL HAEMORRHAGE [None]
